FAERS Safety Report 14256280 (Version 2)
Quarter: 2018Q1

REPORT INFORMATION
  Report Type: Spontaneous
  Country: FR (occurrence: FR)
  Receive Date: 20171206
  Receipt Date: 20180227
  Transmission Date: 20180508
  Serious: Yes (Other)
  Sender: FDA-Public Use
  Company Number: FR-JNJFOC-20171205061

PATIENT
  Age: 63 Year
  Sex: Female

DRUGS (9)
  1. KARDEGIC [Concomitant]
     Active Substance: ASPIRIN DL-LYSINE
     Route: 065
  2. CEBUTID [Concomitant]
     Active Substance: FLURBIPROFEN
     Route: 065
  3. HYDROCHLOROTHIAZIDE. [Concomitant]
     Active Substance: HYDROCHLOROTHIAZIDE
     Route: 065
  4. BISOPROLOL [Concomitant]
     Active Substance: BISOPROLOL
     Route: 065
  5. SIMPONI [Suspect]
     Active Substance: GOLIMUMAB
     Indication: ANKYLOSING SPONDYLITIS
     Route: 058
     Dates: start: 20151120
  6. IZALGI [Concomitant]
     Active Substance: ACETAMINOPHEN\OPIUM
     Route: 065
  7. ROSUVASTATIN. [Concomitant]
     Active Substance: ROSUVASTATIN
     Route: 065
  8. SIMPONI [Suspect]
     Active Substance: GOLIMUMAB
     Indication: ANKYLOSING SPONDYLITIS
     Route: 058
     Dates: start: 20171107
  9. METFORMINE [Concomitant]
     Active Substance: METFORMIN HYDROCHLORIDE
     Route: 065

REACTIONS (4)
  - Fatigue [Unknown]
  - Treatment noncompliance [Unknown]
  - Off label use [Unknown]
  - Incorrect dose administered [Unknown]

NARRATIVE: CASE EVENT DATE: 201711
